FAERS Safety Report 23549115 (Version 1)
Quarter: 2024Q1

REPORT INFORMATION
  Report Type: Report from Study
  Country: DE (occurrence: DE)
  Receive Date: 20240221
  Receipt Date: 20240221
  Transmission Date: 20240409
  Serious: Yes (Other)
  Sender: FDA-Public Use
  Company Number: DE-PFM-2024-01035

PATIENT
  Sex: Male
  Weight: 108 kg

DRUGS (7)
  1. BRAFTOVI [Suspect]
     Active Substance: ENCORAFENIB
     Indication: Colorectal cancer
     Dosage: 300 MG
     Route: 048
     Dates: start: 20211115, end: 20230208
  2. CETUXIMAB [Suspect]
     Active Substance: CETUXIMAB
     Indication: Colorectal cancer
     Dosage: 250 MG/M2, WEEKLY
     Route: 042
     Dates: start: 20211122, end: 20230109
  3. CANDESARTAN [Concomitant]
     Active Substance: CANDESARTAN
     Indication: Hypertension
     Dosage: 16 MG, BID (2/DAY)
     Route: 048
     Dates: start: 20180628
  4. PREGABALIN [Concomitant]
     Active Substance: PREGABALIN
     Indication: Neuralgia
     Dosage: 300 MG
     Route: 048
     Dates: start: 20220124, end: 20220529
  5. PREGABALIN [Concomitant]
     Active Substance: PREGABALIN
     Dosage: 600 MG
     Route: 048
     Dates: start: 20220530, end: 20230704
  6. GRANISETRON [Concomitant]
     Active Substance: GRANISETRON
     Indication: Prophylaxis
     Dosage: 1 MG
     Route: 048
     Dates: start: 20230213, end: 20230704
  7. DOXYCYCLINE [Concomitant]
     Active Substance: DOXYCYCLINE
     Indication: Infection
     Dosage: 100 MG
     Route: 048
     Dates: start: 20230704, end: 20230704

REACTIONS (1)
  - Polyneuropathy [Recovering/Resolving]

NARRATIVE: CASE EVENT DATE: 20220509
